FAERS Safety Report 20877286 (Version 2)
Quarter: 2022Q2

REPORT INFORMATION
  Report Type: Spontaneous
  Country: US (occurrence: US)
  Receive Date: 20220526
  Receipt Date: 20220622
  Transmission Date: 20220721
  Serious: No
  Sender: FDA-Public Use
  Company Number: US-BRISTOL-MYERS SQUIBB COMPANY-2022-045868

PATIENT
  Age: 57 Year
  Sex: Female
  Weight: 91.62 kg

DRUGS (1)
  1. REVLIMID [Suspect]
     Active Substance: LENALIDOMIDE
     Indication: Plasma cell myeloma
     Dosage: D1-14 Q 21 DAYS
     Route: 048
     Dates: start: 20220411

REACTIONS (3)
  - Asthenia [Unknown]
  - Rash [Recovered/Resolved]
  - Off label use [Unknown]
